FAERS Safety Report 9695408 (Version 4)
Quarter: 2014Q4

REPORT INFORMATION
  Report Type: Report from Study
  Country: GB (occurrence: GB)
  Receive Date: 20131119
  Receipt Date: 20141202
  Transmission Date: 20150529
  Serious: Yes (Hospitalization)
  Sender: FDA-Public Use
  Company Number: GB-B.I. PHARMACEUTICALS,INC./RIDGEFIELD-2012-UK-00003UK

PATIENT
  Age: 64 Year
  Sex: Female
  Weight: 75 kg

DRUGS (9)
  1. BIBW 2992 [Suspect]
     Active Substance: AFATINIB
     Dosage: 30 MG
     Route: 048
     Dates: start: 20120104
  2. HYDROCORTISONE. [Concomitant]
     Active Substance: HYDROCORTISONE
     Indication: RASH
     Route: 061
     Dates: start: 20120103
  3. TEMAZEPAM. [Concomitant]
     Active Substance: TEMAZEPAM
     Indication: MUSCLE SPASMS
     Dosage: 10 MG
     Route: 048
     Dates: start: 20111219
  4. DOMPERIDONE [Concomitant]
     Active Substance: DOMPERIDONE
     Indication: NAUSEA
     Dosage: 10 MG
     Route: 048
     Dates: start: 20111229
  5. CYCLIZINE [Concomitant]
     Active Substance: CYCLIZINE
     Indication: NAUSEA
     Dosage: 50 MG
     Route: 048
     Dates: start: 20111231
  6. BIBW 2992 [Suspect]
     Active Substance: AFATINIB
     Indication: BREAST CANCER
     Dosage: 440MG REPORTED AS TOTAL DAILY DOSE AT ONSET OF EVENT
     Route: 048
     Dates: start: 20111220
  7. CLARITHROMYCIN. [Concomitant]
     Active Substance: CLARITHROMYCIN
     Indication: LOWER RESPIRATORY TRACT INFECTION
     Dosage: 1000 MG
     Route: 048
     Dates: start: 20111229, end: 20120103
  8. DIPROBASE [Concomitant]
     Active Substance: CHLOROCRESOL
     Indication: RASH
     Route: 061
     Dates: start: 20120103
  9. ADCAL [Concomitant]
     Indication: GENERAL PHYSICAL CONDITION
     Route: 048
     Dates: start: 20120103

REACTIONS (3)
  - Diarrhoea [Recovered/Resolved]
  - Rash [Unknown]
  - Vomiting [Recovered/Resolved]

NARRATIVE: CASE EVENT DATE: 20111222
